FAERS Safety Report 5293163-X (Version None)
Quarter: 2007Q2

REPORT INFORMATION
  Report Type: 
  Country: None (occurrence: None)
  Receive Date: 20070404
  Receipt Date: 20070323
  Transmission Date: 20071010
  Serious: Yes (Hospitalization)
  Sender: FDA-Public Use
  Company Number: 163-20785-07031522

PATIENT
  Age: 53 Year
  Sex: Male

DRUGS (10)
  1. THALOMID [Suspect]
     Indication: MULTIPLE MYELOMA
     Dosage: 100 MG, 2 IN 1 D, ORAL
     Route: 048
     Dates: start: 20061229, end: 20070228
  2. DECADRON [Suspect]
     Indication: DRUG USE FOR UNKNOWN INDICATION
     Dosage: QD DAYS 1-4, 9-12, 17-20,
     Dates: start: 20061201
  3. ZOMETA [Concomitant]
  4. DILAUDID [Concomitant]
  5. PROTONIX [Concomitant]
  6. PRILOSEC [Concomitant]
  7. SENEKOT (SENNA FRUIT) [Concomitant]
  8. NEURONTIN [Concomitant]
  9. BACLOFEN [Concomitant]
  10. ARANESP [Concomitant]

REACTIONS (5)
  - ALVEOLITIS ALLERGIC [None]
  - ATRIAL TACHYCARDIA [None]
  - DEEP VEIN THROMBOSIS [None]
  - PULMONARY EMBOLISM [None]
  - THROMBOPHLEBITIS [None]
